FAERS Safety Report 10712738 (Version 1)
Quarter: 2015Q1

REPORT INFORMATION
  Report Type: Spontaneous
  Country: US (occurrence: None)
  Receive Date: 20150113
  Receipt Date: 20150113
  Transmission Date: 20150721
  Serious: Yes (Hospitalization, Other)
  Sender: FDA-Public Use
  Company Number: BD-2014-0157

PATIENT
  Age: 23 Year
  Sex: Male

DRUGS (1)
  1. DIPHENHYDRAMINE [Suspect]
     Active Substance: DIPHENHYDRAMINE
     Indication: PRODUCT USED FOR UNKNOWN INDICATION

REACTIONS (16)
  - Generalised tonic-clonic seizure [None]
  - Hypotension [None]
  - Dry skin [None]
  - Corneal reflex decreased [None]
  - Hypokalaemia [None]
  - Sinus tachycardia [None]
  - Unresponsive to stimuli [None]
  - Toxicity to various agents [None]
  - Defect conduction intraventricular [None]
  - Ventricular extrasystoles [None]
  - Areflexia [None]
  - Depressed level of consciousness [None]
  - Tachycardia [None]
  - Lipase increased [None]
  - Electrocardiogram QT prolonged [None]
  - Intentional overdose [None]
